FAERS Safety Report 25172766 (Version 2)
Quarter: 2025Q2

REPORT INFORMATION
  Report Type: Spontaneous
  Country: CN (occurrence: CN)
  Receive Date: 20250408
  Receipt Date: 20250526
  Transmission Date: 20250717
  Serious: Yes (Other)
  Sender: ALEXION PHARMACEUTICALS
  Company Number: CN-ASTRAZENECA-202504CHN000789CN

PATIENT
  Age: 75 Year
  Weight: 74 kg

DRUGS (1)
  1. BRILINTA [Suspect]
     Active Substance: TICAGRELOR
     Indication: Coronary artery disease
     Dosage: 90 MILLIGRAM, BID

REACTIONS (2)
  - Cardiac flutter [Recovering/Resolving]
  - Palpitations [Recovering/Resolving]
